FAERS Safety Report 7654445-7 (Version None)
Quarter: 2011Q3

REPORT INFORMATION
  Report Type: 
  Country: None (occurrence: None)
  Receive Date: 20110803
  Receipt Date: 20110729
  Transmission Date: 20111222
  Serious: Yes (Other)
  Sender: FDA-Public Use
  Company Number: US-PFIZER INC-2011173598

PATIENT
  Sex: Female
  Weight: 95.238 kg

DRUGS (2)
  1. CALAN [Concomitant]
     Indication: HYPERTENSION
     Dosage: UNK
  2. XALATAN [Suspect]
     Indication: INTRAOCULAR PRESSURE INCREASED
     Dosage: UNK
     Route: 047

REACTIONS (4)
  - VERTIGO [None]
  - VISUAL ACUITY REDUCED [None]
  - DIZZINESS [None]
  - EYE DISORDER [None]
